FAERS Safety Report 17224627 (Version 1)
Quarter: 2020Q1

REPORT INFORMATION
  Report Type: Spontaneous
  Country: AT (occurrence: AT)
  Receive Date: 20200102
  Receipt Date: 20200102
  Transmission Date: 20200409
  Serious: Yes (Death, Hospitalization, Other)
  Sender: FDA-Public Use
  Company Number: AT-PFIZER INC-2019562835

PATIENT
  Age: 74 Year
  Sex: Female
  Weight: 88 kg

DRUGS (6)
  1. DAFLON [DIOSMIN] [Concomitant]
     Active Substance: DIOSMIN
     Dosage: UNK UNK, QD
  2. PANTOPRAZOLE [Suspect]
     Active Substance: PANTOPRAZOLE
     Dosage: UNK UNK, QD
     Route: 065
  3. SIMVASTATIN. [Concomitant]
     Active Substance: SIMVASTATIN
     Dosage: UNK UNK, QD
  4. CONCOR [Concomitant]
     Active Substance: BISOPROLOL FUMARATE
     Dosage: 5 MILLIGRAM, QD
  5. EUTHYROX [Concomitant]
     Active Substance: LEVOTHYROXINE SODIUM
     Dosage: 125 MICROGRAM, QD
  6. METAMIZOLE [Suspect]
     Active Substance: METAMIZOLE
     Indication: PAIN
     Dosage: 500 MILLIGRAM
     Route: 065
     Dates: start: 20190708, end: 20190820

REACTIONS (3)
  - Pancytopenia [Fatal]
  - Haematoma [Fatal]
  - Spontaneous haemorrhage [Fatal]

NARRATIVE: CASE EVENT DATE: 20190820
